FAERS Safety Report 13359024 (Version 1)
Quarter: 2017Q1

REPORT INFORMATION
  Report Type: Spontaneous
  Country: FR (occurrence: FR)
  Receive Date: 20170322
  Receipt Date: 20170322
  Transmission Date: 20170429
  Serious: Yes (Other)
  Sender: FDA-Public Use
  Company Number: FR-PFIZER INC-2017093438

PATIENT
  Age: 52 Year
  Sex: Female

DRUGS (1)
  1. ALDACTONE [Suspect]
     Active Substance: SPIRONOLACTONE
     Dosage: 75 MG, DAILY

REACTIONS (5)
  - Paraesthesia [Unknown]
  - Fall [Unknown]
  - Loss of consciousness [Unknown]
  - Blood potassium increased [Unknown]
  - Paraesthesia oral [Unknown]
